FAERS Safety Report 12405186 (Version 4)
Quarter: 2017Q4

REPORT INFORMATION
  Report Type: Spontaneous
  Country: US (occurrence: US)
  Receive Date: 20160525
  Receipt Date: 20171006
  Transmission Date: 20180320
  Serious: Yes (Hospitalization)
  Sender: FDA-Public Use
  Company Number: US-ASTRAZENECA-2016SE53098

PATIENT
  Age: 23989 Day
  Sex: Female
  Weight: 113.4 kg

DRUGS (2)
  1. SYMBICORT [Suspect]
     Active Substance: BUDESONIDE\FORMOTEROL FUMARATE DIHYDRATE
     Indication: ASTHMA
     Dosage: 160/4.5 MCG 2 PUFFS TWO TIMES A DAY
     Route: 055
     Dates: start: 201511
  2. PROAIR HFA [Concomitant]
     Active Substance: ALBUTEROL SULFATE
     Route: 055

REACTIONS (6)
  - Intentional product misuse [Unknown]
  - Nasopharyngitis [Unknown]
  - Fall [Unknown]
  - Device malfunction [Unknown]
  - Laryngitis [Unknown]
  - Wrist fracture [Unknown]

NARRATIVE: CASE EVENT DATE: 20160508
